FAERS Safety Report 9844800 (Version 1)
Quarter: 2014Q1

REPORT INFORMATION
  Report Type: Spontaneous
  Country: US (occurrence: None)
  Receive Date: 20140123
  Receipt Date: 20140123
  Transmission Date: 20141002
  Serious: No
  Sender: FDA-Public Use
  Company Number: None

PATIENT
  Age: 28 Year
  Sex: Male
  Weight: 95.26 kg

DRUGS (2)
  1. KLONOPIN [Suspect]
     Indication: PANIC REACTION
     Dosage: 1MG PILL  THREE TIMES DAILY  TAKEN BY MOUTH
     Route: 048
     Dates: start: 20140114, end: 20140117
  2. KLONOPIN [Suspect]
     Indication: ANXIETY
     Dosage: 1MG PILL  THREE TIMES DAILY  TAKEN BY MOUTH
     Route: 048
     Dates: start: 20140114, end: 20140117

REACTIONS (6)
  - Irritability [None]
  - Aggression [None]
  - Restlessness [None]
  - Anger [None]
  - Hostility [None]
  - Unevaluable event [None]
